FAERS Safety Report 7423724-0 (Version None)
Quarter: 2011Q2

REPORT INFORMATION
  Report Type: 
  Country: None (occurrence: None)
  Receive Date: 20110413
  Receipt Date: 20110413
  Transmission Date: 20111010
  Serious: Yes (Hospitalization)
  Sender: FDA-Public Use
  Company Number: None

PATIENT
  Sex: Female
  Weight: 104.3273 kg

DRUGS (4)
  1. NORVASC [Concomitant]
  2. PREMPHASE (PREMARIN;CYCRIN 14/14) [Concomitant]
  3. ENALAPRIL MALEATE [Suspect]
     Indication: HYPERTENSION
     Dosage: 20 MG BID P.O.
     Route: 048
  4. CELEXA [Concomitant]

REACTIONS (2)
  - PRODUCT SUBSTITUTION ISSUE [None]
  - CONFUSIONAL STATE [None]
